FAERS Safety Report 8030751-1 (Version None)
Quarter: 2011Q4

REPORT INFORMATION
  Report Type: 
  Country: None (occurrence: None)
  Receive Date: 20111202
  Receipt Date: 20090805
  Transmission Date: 20120403
  Serious: Yes (Hospitalization, Disabling)
  Sender: FDA-Public Use
  Company Number: 2009SP017696

PATIENT
  Age: 35 Year
  Sex: Female
  Weight: 95.2554 kg

DRUGS (4)
  1. NUVARING [Suspect]
     Indication: CONTRACEPTION
     Dosage: 1 DF, QM, VAG
     Route: 067
     Dates: start: 20030301, end: 20060906
  2. NUVARING [Suspect]
     Indication: MENSTRUATION IRREGULAR
     Dosage: 1 DF, QM, VAG
     Route: 067
     Dates: start: 20030301, end: 20060906
  3. TYLENOL W/ CODEINE [Concomitant]
  4. TRAZODONE HCL [Concomitant]

REACTIONS (18)
  - PAIN IN EXTREMITY [None]
  - FIBROCYSTIC BREAST DISEASE [None]
  - UPPER RESPIRATORY TRACT INFECTION [None]
  - ECCHYMOSIS [None]
  - NERVE INJURY [None]
  - CHALAZION [None]
  - ANXIETY [None]
  - HORDEOLUM [None]
  - CONTUSION [None]
  - PULMONARY EMBOLISM [None]
  - LIGAMENT SPRAIN [None]
  - ERYTHEMA [None]
  - PALPITATIONS [None]
  - MEIBOMIANITIS [None]
  - FALL [None]
  - MENORRHAGIA [None]
  - AMNESIA [None]
  - BLEPHARITIS [None]
